FAERS Safety Report 8092674-1 (Version None)
Quarter: 2011Q4

REPORT INFORMATION
  Report Type: 
  Country: None (occurrence: None)
  Receive Date: 20111222
  Receipt Date: 20111104
  Transmission Date: 20120403
  Serious: Yes (Hospitalization)
  Sender: FDA-Public Use
  Company Number: UTC-012067

PATIENT
  Age: 56 Year
  Sex: Male
  Weight: 115.4 kg

DRUGS (4)
  1. TYVASO [Suspect]
     Indication: PULMONARY ARTERIAL HYPERTENSION
     Dosage: 216 MCG  (54 MCG, 4 IN 1 D), INHALATION
     Route: 055
     Dates: start: 20110609
  2. LETAIRIS (AMRISENTAN) [Concomitant]
  3. REVATIO [Concomitant]
  4. DIURETICS (DIURETICS) [Concomitant]

REACTIONS (3)
  - DIARRHOEA [None]
  - FLUSHING [None]
  - DIZZINESS [None]
